FAERS Safety Report 10256867 (Version 3)
Quarter: 2014Q4

REPORT INFORMATION
  Report Type: Spontaneous
  Country: CA (occurrence: CA)
  Receive Date: 20140625
  Receipt Date: 20141021
  Transmission Date: 20150528
  Serious: Yes (Hospitalization)
  Sender: FDA-Public Use
  Company Number: CA-ROCHE-1423592

PATIENT
  Age: 14 Year
  Sex: Female

DRUGS (5)
  1. SYMBICORT [Concomitant]
     Active Substance: BUDESONIDE\FORMOTEROL FUMARATE DIHYDRATE
  2. XOLAIR [Suspect]
     Active Substance: OMALIZUMAB
     Indication: ASTHMA
     Route: 058
     Dates: start: 20120522
  3. PREDNISONE. [Concomitant]
     Active Substance: PREDNISONE
  4. SINGULAIR [Concomitant]
     Active Substance: MONTELUKAST SODIUM
  5. VENTOLIN [Concomitant]
     Active Substance: ALBUTEROL SULFATE

REACTIONS (3)
  - Type 1 diabetes mellitus [Unknown]
  - Headache [Unknown]
  - Weight increased [Unknown]

NARRATIVE: CASE EVENT DATE: 20140614
